FAERS Safety Report 7287675-7 (Version None)
Quarter: 2011Q1

REPORT INFORMATION
  Report Type: 
  Country: None (occurrence: None)
  Receive Date: 20110211
  Receipt Date: 20110201
  Transmission Date: 20110831
  Serious: Yes (Hospitalization, Other)
  Sender: FDA-Public Use
  Company Number: US-ELI_LILLY_AND_COMPANY-US201012005184

PATIENT
  Sex: Female

DRUGS (12)
  1. SYNTHROID [Concomitant]
     Dosage: 25 MG, DAILY (1/D)
  2. MAXZIDE [Concomitant]
     Dosage: 25 MG, DAILY (1/D)
  3. MORPHINE SULFATE [Concomitant]
     Dosage: 100 MG, EVERY 8 HRS
  4. KLOR-CON [Concomitant]
     Dosage: 10-10 MEQ, UNK
  5. LORTAB [Concomitant]
     Dosage: 10.5 MG, AS NEEDED
  6. CIPRO [Concomitant]
     Dosage: UNK, UNKNOWN
     Route: 065
  7. VOLTAREN                                /SCH/ [Concomitant]
     Dosage: 75 MG, DAILY (1/D)
  8. LASIX [Concomitant]
     Dosage: 40 MG, DAILY (1/D) (1/2 TO 1 TABLET DAILY)
  9. FORTEO [Suspect]
     Indication: OSTEOPOROSIS
     Dosage: 20 UG, DAILY (1/D)
     Dates: start: 20100801
  10. PERCOCET [Concomitant]
     Dosage: 10-650MGS, EVERY 4 HRS
  11. CELEXA [Concomitant]
     Dosage: 40 MG, 2/D
  12. PROMETHAZINE [Concomitant]
     Indication: NAUSEA
     Dosage: 25 MG, AS NEEDED

REACTIONS (4)
  - RASH MACULAR [None]
  - RENAL CANCER [None]
  - PNEUMONIA [None]
  - HYPERSENSITIVITY [None]
